FAERS Safety Report 5441502-9 (Version None)
Quarter: 2007Q3

REPORT INFORMATION
  Report Type: 
  Country: None (occurrence: None)
  Receive Date: 20070829
  Receipt Date: 20070817
  Transmission Date: 20080115
  Serious: Yes (Hospitalization)
  Sender: FDA-Public Use
  Company Number: 2007SP016774

PATIENT
  Age: 43 Year
  Sex: Male

DRUGS (9)
  1. VIRAFERONPEG [Suspect]
     Indication: HEPATITIS C
     Dosage: 64 MCG; QW; SC, 50 MCG; QW; SC, 80 MCG; QW; SC,
     Route: 058
     Dates: start: 20070307, end: 20070321
  2. VIRAFERONPEG [Suspect]
     Indication: HEPATITIS C
     Dosage: 64 MCG; QW; SC, 50 MCG; QW; SC, 80 MCG; QW; SC,
     Route: 058
     Dates: start: 20070423, end: 20070423
  3. VIRAFERONPEG [Suspect]
     Indication: HEPATITIS C
     Dosage: 64 MCG; QW; SC, 50 MCG; QW; SC, 80 MCG; QW; SC,
     Route: 058
     Dates: start: 20070508, end: 20070531
  4. COPEGUS [Suspect]
     Indication: HEPATITIS C
     Dosage: 1200 MG; QD; PO, ;PO
     Route: 048
     Dates: start: 20070307, end: 20070321
  5. COPEGUS [Suspect]
     Indication: HEPATITIS C
     Dosage: 1200 MG; QD; PO, ;PO
     Route: 048
     Dates: start: 20070416
  6. LYRICA [Suspect]
     Indication: NEUROPATHY PERIPHERAL
     Dosage: 75 MG; BID; PO
     Route: 048
     Dates: start: 20070306, end: 20070321
  7. REYATAZ [Concomitant]
  8. KALETRA [Concomitant]
  9. LAROXYL [Concomitant]

REACTIONS (4)
  - INJECTION SITE REACTION [None]
  - PRURITUS [None]
  - RASH MACULO-PAPULAR [None]
  - TOXIC SKIN ERUPTION [None]
